FAERS Safety Report 17983335 (Version 1)
Quarter: 2020Q3

REPORT INFORMATION
  Report Type: Spontaneous
  Country: US (occurrence: US)
  Receive Date: 20200703
  Receipt Date: 20200703
  Transmission Date: 20201103
  Serious: Yes (Hospitalization)
  Sender: FDA-Public Use
  Company Number: None

PATIENT
  Sex: Male

DRUGS (7)
  1. FUROSEMIDE. [Concomitant]
     Active Substance: FUROSEMIDE
  2. RISPERIDONE. [Concomitant]
     Active Substance: RISPERIDONE
  3. LAMOTRIGINE. [Concomitant]
     Active Substance: LAMOTRIGINE
  4. PREDNISONE. [Concomitant]
     Active Substance: PREDNISONE
  5. RISPERDAL [Concomitant]
     Active Substance: RISPERIDONE
  6. TACROLIMUS, 0.5 MG [Suspect]
     Active Substance: TACROLIMUS
     Indication: NEPHROTIC SYNDROME
     Route: 048
     Dates: start: 20200414
  7. MYCOPHENOLATE, 250MG [Suspect]
     Active Substance: MYCOPHENOLATE MOFETIL
     Indication: NEPHROTIC SYNDROME
     Route: 048
     Dates: start: 20200624

REACTIONS (2)
  - Hospitalisation [None]
  - Therapy interrupted [None]
